FAERS Safety Report 5399080-9 (Version None)
Quarter: 2007Q3

REPORT INFORMATION
  Report Type: 
  Country: None (occurrence: None)
  Receive Date: 20070727
  Receipt Date: 20060619
  Transmission Date: 20080115
  Serious: No
  Sender: FDA-Public Use
  Company Number: A0609622A

PATIENT
  Sex: Female

DRUGS (5)
  1. LOTRONEX [Suspect]
     Indication: DRUG USE FOR UNKNOWN INDICATION
     Route: 048
     Dates: start: 20060616
  2. PREMARIN [Concomitant]
  3. FOSAMAX [Concomitant]
  4. NEXIUM [Concomitant]
  5. BENADRYL [Concomitant]
     Indication: SLEEP DISORDER

REACTIONS (2)
  - FATIGUE [None]
  - FEELING ABNORMAL [None]
